FAERS Safety Report 14172563 (Version 1)
Quarter: 2017Q4

REPORT INFORMATION
  Report Type: Spontaneous
  Country: FR (occurrence: FR)
  Receive Date: 20171109
  Receipt Date: 20171109
  Transmission Date: 20180321
  Serious: Yes (Other)
  Sender: FDA-Public Use
  Company Number: FR-MERCK KGAA-2033629

PATIENT
  Age: 60 Year
  Sex: Female

DRUGS (2)
  1. LEVOTHYROXINE SODIUM. [Suspect]
     Active Substance: LEVOTHYROXINE SODIUM
     Route: 048
     Dates: start: 20170629, end: 20170916
  2. NOVOTHYROX [Suspect]
     Active Substance: LEVOTHYROXINE SODIUM
     Indication: THYROIDECTOMY
     Route: 048
     Dates: start: 20170629, end: 20170916

REACTIONS (10)
  - Arrhythmia [Recovering/Resolving]
  - Irritability [Unknown]
  - Arthralgia [Recovering/Resolving]
  - Crying [Unknown]
  - Blood thyroid stimulating hormone decreased [Unknown]
  - Headache [Recovering/Resolving]
  - Weight increased [Unknown]
  - Dizziness [Recovering/Resolving]
  - Gastric disorder [Recovering/Resolving]
  - Insomnia [Recovering/Resolving]

NARRATIVE: CASE EVENT DATE: 20170705
